FAERS Safety Report 12935745 (Version 2)
Quarter: 2016Q4

REPORT INFORMATION
  Report Type: Spontaneous
  Country: TR (occurrence: TR)
  Receive Date: 20161114
  Receipt Date: 20161215
  Transmission Date: 20170207
  Serious: Yes (Life-Threatening, Hospitalization, Other)
  Sender: FDA-Public Use
  Company Number: TR-ACCORD-045565

PATIENT
  Age: 28 Year
  Sex: Female

DRUGS (3)
  1. LEVOTHYROXINE. [Suspect]
     Active Substance: LEVOTHYROXINE
     Dosage: HIGH DOSES
     Route: 048
  2. QUETIAPINE. [Suspect]
     Active Substance: QUETIAPINE
     Dosage: HIGH DOSES
     Route: 048
  3. BUPROPION/BUPROPION HYDROCHLORIDE [Suspect]
     Active Substance: BUPROPION HYDROCHLORIDE
     Dosage: HIGH DOSES
     Route: 048

REACTIONS (10)
  - Hypotension [Recovered/Resolved]
  - Respiratory distress [Recovering/Resolving]
  - Suicide attempt [Unknown]
  - Bradycardia [Recovered/Resolved]
  - Disorientation [None]
  - Intentional overdose [None]
  - Tachycardia [Recovered/Resolved]
  - Generalised tonic-clonic seizure [Unknown]
  - Toxicity to various agents [Unknown]
  - Agitation [None]
